FAERS Safety Report 12650030 (Version 1)
Quarter: 2016Q3

REPORT INFORMATION
  Report Type: Spontaneous
  Country: FR (occurrence: FR)
  Receive Date: 20160813
  Receipt Date: 20160813
  Transmission Date: 20161109
  Serious: Yes (Hospitalization)
  Sender: FDA-Public Use
  Company Number: FR-ACCORD-043154

PATIENT
  Age: 65 Year
  Sex: Female

DRUGS (8)
  1. FLUOROURACILE ACCORD [Suspect]
     Active Substance: FLUOROURACIL
     Indication: PANCREATIC CARCINOMA METASTATIC
     Dosage: FOLFIRINOX PROTOCOL
     Route: 042
     Dates: start: 20160613, end: 20160613
  2. DUROGESIC [Suspect]
     Active Substance: FENTANYL
     Indication: PRODUCT USED FOR UNKNOWN INDICATION
     Dosage: STRENGTH: 50 MICROGRAMMES/HOUR (8.4 MG/21 CM3), PATCH
     Route: 062
     Dates: start: 201605
  3. ABSTRAL [Suspect]
     Active Substance: FENTANYL CITRATE
     Indication: PRODUCT USED FOR UNKNOWN INDICATION
     Dosage: STRENGTH: 100 MICROGRAMMES
     Route: 060
     Dates: start: 201605
  4. PARACETAMOL [Suspect]
     Active Substance: ACETAMINOPHEN
     Indication: PRODUCT USED FOR UNKNOWN INDICATION
     Route: 048
     Dates: start: 20160613
  5. SPASFON [Concomitant]
     Active Substance: PHLOROGLUCINOL
  6. LEUCOVORIN. [Concomitant]
     Active Substance: LEUCOVORIN
     Indication: PANCREATIC CARCINOMA METASTATIC
     Route: 042
     Dates: start: 20160613, end: 20160613
  7. OXALIPLATINE HOSPIRA [Suspect]
     Active Substance: OXALIPLATIN
     Indication: PANCREATIC CARCINOMA METASTATIC
     Dosage: FOLFIRINOX PROTOCOL
     Route: 042
     Dates: start: 20160613, end: 20160613
  8. IRINOTECAN ACCORD [Suspect]
     Active Substance: IRINOTECAN
     Indication: PANCREATIC CARCINOMA METASTATIC
     Dosage: FOLFIRINOX PROTOCOL
     Route: 042
     Dates: start: 20160613, end: 20160613

REACTIONS (7)
  - Diarrhoea [Unknown]
  - Blood phosphorus decreased [Recovered/Resolved]
  - Vomiting [Unknown]
  - Agranulocytosis [Recovered/Resolved]
  - Hypokalaemia [Recovered/Resolved]
  - Thrombocytopenia [Recovered/Resolved]
  - Off label use [Unknown]

NARRATIVE: CASE EVENT DATE: 20160624
